FAERS Safety Report 4451078-0 (Version None)
Quarter: 2004Q3

REPORT INFORMATION
  Report Type: 
  Country: None (occurrence: None)
  Receive Date: 20040916
  Receipt Date: 20040907
  Transmission Date: 20050211
  Serious: Yes (Hospitalization)
  Sender: FDA-Public Use
  Company Number: FR-JNJFOC-20040901976

PATIENT
  Age: 41 Year
  Sex: Female

DRUGS (3)
  1. REMICADE [Suspect]
     Indication: CROHN'S DISEASE
     Route: 042
  2. TAGAMET [Concomitant]
     Route: 049
  3. PENTASA [Concomitant]
     Route: 049

REACTIONS (16)
  - AMNESIA [None]
  - APHTHOUS STOMATITIS [None]
  - ARTHRALGIA [None]
  - BACK PAIN [None]
  - DERMATITIS ACNEIFORM [None]
  - DIFFICULTY IN WALKING [None]
  - FATIGUE [None]
  - HERPES VIRUS INFECTION [None]
  - MIGRAINE [None]
  - MUSCLE CRAMP [None]
  - MYALGIA [None]
  - NECK PAIN [None]
  - PHARYNGITIS [None]
  - PHARYNGOLARYNGEAL PAIN [None]
  - RASH [None]
  - VERTIGO [None]
